FAERS Safety Report 6024170-7 (Version None)
Quarter: 2008Q4

REPORT INFORMATION
  Report Type: 
  Country: None (occurrence: None)
  Receive Date: 20081224
  Receipt Date: 20081209
  Transmission Date: 20090506
  Serious: Yes (Hospitalization)
  Sender: FDA-Public Use
  Company Number: 2008-01351FE

PATIENT
  Age: 80 Year
  Sex: Female

DRUGS (11)
  1. MINIRIN [Suspect]
     Indication: URINARY INCONTINENCE
     Dosage: 0.2 MG PO
     Route: 048
     Dates: end: 20080101
  2. COOLMETEC () (OLMESARTAN) [Suspect]
     Indication: HYPERTENSION
     Dosage: PO
     Route: 048
     Dates: end: 20080630
  3. ATHYMIL (ATHYMIL) (MIANSERIN HYDROCHLORIDE) [Suspect]
     Indication: DEPRESSION
     Dosage: 60 MG PO
     Route: 048
     Dates: end: 20080630
  4. PROPRANOLOL [Concomitant]
  5. OXAZEPAM [Concomitant]
  6. PARACETAMOL [Concomitant]
  7. OXYBUTYNIN CHLORIDE [Concomitant]
  8. RABEPRAZOLE SODIUM [Concomitant]
  9. FLUNARIZINE DIHYDROCHLORIDE [Concomitant]
  10. ALENDRONATE SODIUM [Concomitant]
  11. CALCIUM PHOSPHATE [Concomitant]

REACTIONS (8)
  - CULTURE URINE POSITIVE [None]
  - DISORIENTATION [None]
  - FALL [None]
  - HYPOCALCAEMIA [None]
  - HYPONATRAEMIA [None]
  - ORTHOSTATIC HYPOTENSION [None]
  - PSEUDOMONAS INFECTION [None]
  - SOMNOLENCE [None]
